FAERS Safety Report 25435306 (Version 1)
Quarter: 2025Q2

REPORT INFORMATION
  Report Type: Spontaneous
  Country: GB (occurrence: GB)
  Receive Date: 20250613
  Receipt Date: 20250613
  Transmission Date: 20250717
  Serious: Yes (Other)
  Sender: KYOWA
  Company Number: GB-KYOWAKIRIN-2025KK010902

PATIENT

DRUGS (1)
  1. POTELIGEO [Suspect]
     Active Substance: MOGAMULIZUMAB-KPKC
     Indication: Cutaneous T-cell lymphoma stage IV
     Route: 065
     Dates: start: 202311

REACTIONS (1)
  - Squamous cell carcinoma [Recovered/Resolved]
